FAERS Safety Report 8969758 (Version 2)
Quarter: 2013Q1

REPORT INFORMATION
  Report Type: Spontaneous
  Country: ES (occurrence: ES)
  Receive Date: 20121218
  Receipt Date: 20130115
  Transmission Date: 20140127
  Serious: Yes (Hospitalization)
  Sender: FDA-Public Use
  Company Number: ES-009507513-1212ESP004998

PATIENT
  Age: 5 Year
  Sex: Female

DRUGS (2)
  1. VARIVAX [Suspect]
     Indication: IMMUNISATION
     Dosage: 1 DF
     Route: 065
     Dates: start: 201210, end: 201210
  2. SINGULAIR [Interacting]
     Indication: HYPERSENSITIVITY
     Dosage: 4 MG, ONCE
     Route: 065
     Dates: start: 201210

REACTIONS (6)
  - Respiratory failure [Recovered/Resolved]
  - Hypotonia [Recovered/Resolved]
  - Vomiting [Recovered/Resolved]
  - Jaundice [Recovered/Resolved]
  - Somnolence [Recovered/Resolved]
  - Drug interaction [Unknown]
